FAERS Safety Report 7003710-5 (Version None)
Quarter: 2010Q3

REPORT INFORMATION
  Report Type: 
  Country: None (occurrence: None)
  Receive Date: 20100920
  Receipt Date: 20090520
  Transmission Date: 20110219
  Serious: No
  Sender: FDA-Public Use
  Company Number: US-WYE-H09427509

PATIENT
  Age: 17 Year
  Sex: Male
  Weight: 77.18 kg

DRUGS (2)
  1. PROTONIX [Suspect]
     Indication: GASTROOESOPHAGEAL REFLUX DISEASE
     Route: 048
  2. ALLEGRA [Concomitant]

REACTIONS (1)
  - DRUG SCREEN FALSE POSITIVE [None]
